FAERS Safety Report 20542557 (Version 4)
Quarter: 2022Q2

REPORT INFORMATION
  Report Type: Spontaneous
  Country: JP (occurrence: JP)
  Receive Date: 20220302
  Receipt Date: 20220520
  Transmission Date: 20220720
  Serious: Yes (Hospitalization, Other)
  Sender: FDA-Public Use
  Company Number: JP-MSD-M2022-07936

PATIENT
  Age: 80 Year
  Sex: Male
  Weight: 40 kg

DRUGS (6)
  1. MOLNUPIRAVIR [Suspect]
     Active Substance: MOLNUPIRAVIR
     Indication: COVID-19 treatment
     Dosage: 800 MILLIGRAM, BID
     Route: 048
     Dates: start: 20220222
  2. LANSOPRAZOLE [Suspect]
     Active Substance: LANSOPRAZOLE
     Dosage: 15 MILLIGRAM, QD
     Route: 048
     Dates: end: 20220225
  3. DECADRON [Concomitant]
     Active Substance: DEXAMETHASONE
     Indication: COVID-19 treatment
     Dosage: 3 MILLIGRAM, BID
     Route: 048
     Dates: start: 20220223, end: 20220302
  4. ELIQUIS [Concomitant]
     Active Substance: APIXABAN
     Indication: COVID-19 treatment
     Dosage: 2.5 MILLIGRAM, BID
     Route: 048
     Dates: start: 20220223, end: 20220302
  5. OLUMIANT [Concomitant]
     Active Substance: BARICITINIB
     Indication: COVID-19 treatment
     Dosage: 4 MILLIGRAM, QD
     Route: 048
     Dates: start: 20220223, end: 20220227
  6. EXELON [Concomitant]
     Active Substance: RIVASTIGMINE TARTRATE
     Dosage: 18 MILLIGRAM

REACTIONS (3)
  - Adverse event [Unknown]
  - Platelet count decreased [Recovered/Resolved]
  - White blood cell count decreased [Recovered/Resolved]

NARRATIVE: CASE EVENT DATE: 20220223
